FAERS Safety Report 4548632-4 (Version None)
Quarter: 2005Q1

REPORT INFORMATION
  Report Type: 
  Country: None (occurrence: None)
  Receive Date: 20050107
  Receipt Date: 20050107
  Transmission Date: 20050727
  Serious: Yes (Hospitalization)
  Sender: FDA-Public Use
  Company Number: None

PATIENT
  Sex: Female
  Weight: 82.5547 kg

DRUGS (3)
  1. AROMASIN [Suspect]
     Indication: BREAST CANCER
     Dosage: 25 MG PO QD
     Route: 048
     Dates: start: 20041123
  2. FASLODEX [Suspect]
     Indication: BREAST CANCER
     Dosage: FASLODEX 500MG / 250MG IM
     Route: 030
     Dates: start: 20041122
  3. FASLODEX [Suspect]
     Indication: BREAST CANCER
     Dosage: FASLODEX 500MG / 250MG IM
     Route: 030
     Dates: start: 20041206

REACTIONS (2)
  - CELLULITIS [None]
  - MALAISE [None]
